FAERS Safety Report 7591851-3 (Version None)
Quarter: 2011Q3

REPORT INFORMATION
  Report Type: 
  Country: None (occurrence: None)
  Receive Date: 20110701
  Receipt Date: 20110701
  Transmission Date: 20111222
  Serious: No
  Sender: FDA-Public Use
  Company Number: None

PATIENT
  Age: 16 Year
  Sex: Male
  Weight: 39.9165 kg

DRUGS (1)
  1. ZYRTEC [Suspect]
     Dosage: 10MG QD P.O.
     Route: 048

REACTIONS (1)
  - URTICARIA [None]
